FAERS Safety Report 8996799 (Version 1)
Quarter: 2012Q4

REPORT INFORMATION
  Report Type: Spontaneous
  Country: US (occurrence: None)
  Receive Date: 20121228
  Receipt Date: 20121228
  Transmission Date: 20130627
  Serious: No
  Sender: FDA-Public Use
  Company Number: None

PATIENT
  Sex: Female
  Weight: 72.58 kg

DRUGS (1)
  1. VOLTAREN GEL [Suspect]
     Dosage: apply topically to affected area 4 times Daily
used for about 1 month
     Route: 061
     Dates: start: 20090617

REACTIONS (3)
  - Palpitations [None]
  - Dyspnoea [None]
  - Fear [None]
